FAERS Safety Report 8191878-7 (Version None)
Quarter: 2012Q1

REPORT INFORMATION
  Report Type: 
  Country: None (occurrence: None)
  Receive Date: 20120307
  Receipt Date: 20120222
  Transmission Date: 20120608
  Serious: Yes (Other)
  Sender: FDA-Public Use
  Company Number: PHHY2011JP50287

PATIENT
  Age: 9 Year
  Sex: Female

DRUGS (9)
  1. ACYCLOVIR [Concomitant]
     Indication: PROPHYLAXIS
     Route: 048
  2. ZOFRON [Concomitant]
     Dosage: 4 ML, UNK
     Route: 048
     Dates: start: 20110519
  3. GLEEVEC [Suspect]
     Indication: ACUTE LYMPHOCYTIC LEUKAEMIA
     Dosage: 200 MG, DAILY
     Route: 048
     Dates: start: 20110115
  4. HALIZON [Concomitant]
     Indication: PROPHYLAXIS
     Dosage: 4 ML, UNK
     Route: 048
  5. COTRIM [Concomitant]
     Indication: PROPHYLAXIS
     Dosage: 2 G, UNK
     Route: 048
  6. CYCLOSPORINE [Concomitant]
     Indication: PROPHYLAXIS AGAINST GRAFT VERSUS HOST DISEASE
  7. SPRYCEL [Concomitant]
  8. CHEMOTHERAPEUTICS NOS [Concomitant]
  9. ZOVIRAX [Concomitant]
     Indication: PROPHYLAXIS
     Dosage: 200 MG, UNK
     Route: 048
     Dates: start: 20110519

REACTIONS (3)
  - HYPOCOAGULABLE STATE [None]
  - HEPATITIS FULMINANT [None]
  - HYPERBILIRUBINAEMIA [None]
